FAERS Safety Report 8415647-5 (Version None)
Quarter: 2012Q2

REPORT INFORMATION
  Report Type: 
  Country: None (occurrence: None)
  Receive Date: 20120606
  Receipt Date: 20120604
  Transmission Date: 20120825
  Serious: No
  Sender: FDA-Public Use
  Company Number: PHHY2011AR109854

PATIENT
  Sex: Female

DRUGS (1)
  1. TASIGNA [Suspect]
     Indication: CHRONIC MYELOID LEUKAEMIA
     Dosage: 800 MG, DAILY
     Dates: start: 20110501

REACTIONS (4)
  - NO THERAPEUTIC RESPONSE [None]
  - GINGIVAL SWELLING [None]
  - SWELLING FACE [None]
  - HYPERSENSITIVITY [None]
